FAERS Safety Report 17258470 (Version 2)
Quarter: 2020Q1

REPORT INFORMATION
  Report Type: Spontaneous
  Country: US (occurrence: US)
  Receive Date: 20200110
  Receipt Date: 20200212
  Transmission Date: 20200409
  Serious: Yes (Other)
  Sender: FDA-Public Use
  Company Number: US-PFIZER INC-2015113826

PATIENT
  Age: 90 Year
  Sex: Female

DRUGS (4)
  1. PREMARIN VAGINAL [Concomitant]
     Active Substance: ESTROGENS, CONJUGATED
     Dosage: UNK
  2. TYLENOL ARTHRITIS PAIN [Concomitant]
     Active Substance: ACETAMINOPHEN
     Indication: ARTHRALGIA
     Dosage: 650 MG, UNK (OCCASIONALLY TAKES IT ONCE A MONTH OR SO)
  3. CELEBREX [Suspect]
     Active Substance: CELECOXIB
     Indication: ARTHRITIS
     Dosage: 200 MG, 1X/DAY
     Dates: start: 200001, end: 20150330
  4. CELEBREX [Suspect]
     Active Substance: CELECOXIB
     Dosage: 200 MG, 1X/DAY (ONE EVERY MORNING WITH BREAKFAST)
     Route: 048
     Dates: start: 2019

REACTIONS (6)
  - Skin discolouration [Unknown]
  - Dyspnoea [Unknown]
  - Hypopnoea [Unknown]
  - Memory impairment [Unknown]
  - Poor peripheral circulation [Unknown]
  - Pain in extremity [Unknown]
